FAERS Safety Report 21098217 (Version 2)
Quarter: 2022Q3

REPORT INFORMATION
  Report Type: Report from Study
  Country: CA (occurrence: CA)
  Receive Date: 20220719
  Receipt Date: 20220914
  Transmission Date: 20221026
  Serious: Yes (Hospitalization)
  Sender: FDA-Public Use
  Company Number: CA-JNJFOC-20220727776

PATIENT
  Age: 49 Year
  Sex: Female
  Weight: 101 kg

DRUGS (1)
  1. REMICADE [Suspect]
     Active Substance: INFLIXIMAB
     Indication: Colitis ulcerative
     Dosage: EXPIRY:31-OCT-2024?STRENGTH 1000 (MG
     Route: 042
     Dates: start: 20120430

REACTIONS (4)
  - COVID-19 [Recovered/Resolved]
  - Malaise [Unknown]
  - Infusion related reaction [Unknown]
  - Blood pressure increased [Unknown]

NARRATIVE: CASE EVENT DATE: 20220712
